FAERS Safety Report 24190839 (Version 2)
Quarter: 2024Q3

REPORT INFORMATION
  Report Type: Spontaneous
  Country: US (occurrence: US)
  Receive Date: 20240808
  Receipt Date: 20240828
  Transmission Date: 20241017
  Serious: Yes (Other)
  Sender: ALEMBIC
  Company Number: US-ALEMBIC PHARMACUETICALS LIMITED-2024SCAL001074

PATIENT

DRUGS (4)
  1. CLONAZEPAM [Suspect]
     Active Substance: CLONAZEPAM
     Indication: Product used for unknown indication
     Dosage: UNK
     Route: 064
  2. ESCITALOPRAM [Suspect]
     Active Substance: ESCITALOPRAM OXALATE
     Indication: Product used for unknown indication
     Dosage: UNK
     Route: 064
  3. GABAPENTIN [Suspect]
     Active Substance: GABAPENTIN
     Indication: Product used for unknown indication
     Dosage: UNK
     Route: 064
  4. METHADONE [Suspect]
     Active Substance: METHADONE HYDROCHLORIDE
     Indication: Product used for unknown indication
     Dosage: UNK
     Route: 064

REACTIONS (16)
  - Infantile apnoea [Recovered/Resolved]
  - Hypertonia neonatal [Recovered/Resolved]
  - Neonatal respiratory distress [Unknown]
  - Hypotonia neonatal [Recovered/Resolved]
  - Infantile back arching [Recovered/Resolved]
  - Decreased activity [Recovered/Resolved]
  - Breath holding [Recovered/Resolved]
  - Feeling jittery [Recovered/Resolved]
  - Tongue thrust [Recovered/Resolved]
  - Neonatal behavioural syndrome [Recovered/Resolved]
  - Dyskinesia [Recovered/Resolved]
  - Drug interaction [Unknown]
  - Toxicity to various agents [Unknown]
  - Tremor neonatal [Recovered/Resolved]
  - Poor sucking reflex [Recovered/Resolved]
  - Foetal exposure during pregnancy [Unknown]
